FAERS Safety Report 12935575 (Version 1)
Quarter: 2016Q4

REPORT INFORMATION
  Report Type: Report from Study
  Country: GB (occurrence: GB)
  Receive Date: 20161114
  Receipt Date: 20161114
  Transmission Date: 20170207
  Serious: Yes (Death)
  Sender: FDA-Public Use
  Company Number: GB-AMGEN-GBRNI2016158552

PATIENT
  Age: 18 Year

DRUGS (1)
  1. ETANERCEPT [Suspect]
     Active Substance: ETANERCEPT
     Indication: JUVENILE IDIOPATHIC ARTHRITIS
     Dosage: 22.2 MG, 2 TIMES/WK
     Route: 065
     Dates: start: 20030501, end: 20030901

REACTIONS (1)
  - Death [Fatal]

NARRATIVE: CASE EVENT DATE: 20070612
